FAERS Safety Report 5548384-5 (Version None)
Quarter: 2007Q4

REPORT INFORMATION
  Report Type: 
  Country: None (occurrence: None)
  Receive Date: 20071206
  Receipt Date: 20071121
  Transmission Date: 20080405
  Serious: Yes (Hospitalization, Other)
  Sender: FDA-Public Use
  Company Number: 163063ISR

PATIENT
  Age: 68 Year
  Sex: Female

DRUGS (7)
  1. FLUOROURACIL [Suspect]
     Indication: CHEMOTHERAPY
     Dosage: 3700 MG, 4100 MG, 4100 MG INTRAVENOUS (NOT OTHERWISE SPECIFIED)
     Route: 042
     Dates: start: 20070709, end: 20070710
  2. FLUOROURACIL [Suspect]
     Indication: CHEMOTHERAPY
     Dosage: 3700 MG, 4100 MG, 4100 MG INTRAVENOUS (NOT OTHERWISE SPECIFIED)
     Route: 042
     Dates: start: 20070723, end: 20070724
  3. FLUOROURACIL [Suspect]
     Indication: CHEMOTHERAPY
     Dosage: 3700 MG, 4100 MG, 4100 MG INTRAVENOUS (NOT OTHERWISE SPECIFIED)
     Route: 042
     Dates: start: 20070917, end: 20070918
  4. OLMESARTAN MEDOXOMIL [Suspect]
     Indication: EPILEPSY
  5. LEVETIRACETAM [Suspect]
     Indication: EPILEPSY
  6. LAMOTRIGINE [Suspect]
     Indication: EPILEPSY
  7. SODIUM FOLINATE [Suspect]
     Indication: CHEMOTHERAPY

REACTIONS (7)
  - ADVERSE DRUG REACTION [None]
  - CONVULSION [None]
  - DIARRHOEA [None]
  - DRUG INTERACTION [None]
  - GRAND MAL CONVULSION [None]
  - PALMAR-PLANTAR ERYTHRODYSAESTHESIA SYNDROME [None]
  - PETIT MAL EPILEPSY [None]
